FAERS Safety Report 11803960 (Version 1)
Quarter: 2015Q4

REPORT INFORMATION
  Report Type: Other
  Country: US (occurrence: US)
  Receive Date: 20151204
  Receipt Date: 20151204
  Transmission Date: 20160305
  Serious: Yes (Other)
  Sender: FDA-Public Use
  Company Number: US-DEP_13154_2015

PATIENT
  Age: 57 Year
  Sex: Male

DRUGS (9)
  1. NEXIUM [Concomitant]
     Active Substance: ESOMEPRAZOLE MAGNESIUM
     Dosage: DF
  2. MOTRIN [Suspect]
     Active Substance: IBUPROFEN
     Indication: PRODUCT USED FOR UNKNOWN INDICATION
     Dosage: DF
  3. COQ10 [Concomitant]
     Active Substance: UBIDECARENONE
     Dosage: DF
  4. CATAFLAM [Suspect]
     Active Substance: DICLOFENAC POTASSIUM
     Indication: PRODUCT USED FOR UNKNOWN INDICATION
     Dosage: TWO TO FOUR TIMES
  5. ENBREL [Concomitant]
     Active Substance: ETANERCEPT
     Dosage: DF
  6. AMBORAL (AMBROXOL HYDROCHLORIDE) [Suspect]
     Active Substance: AMBROXOL HYDROCHLORIDE
     Indication: PRODUCT USED FOR UNKNOWN INDICATION
     Dosage: DF
  7. DICLOFENAC [Suspect]
     Active Substance: DICLOFENAC
     Dosage: 3 TO 4 TIMES QD
  8. MULTI VITAMIN [Concomitant]
     Active Substance: VITAMINS
     Dosage: DF
  9. DICLOFENAC [Suspect]
     Active Substance: DICLOFENAC
     Indication: PRODUCT USED FOR UNKNOWN INDICATION
     Dosage: DF

REACTIONS (4)
  - Drug ineffective [Unknown]
  - Diarrhoea [Unknown]
  - Pain [Unknown]
  - Ankylosing spondylitis [Unknown]
